FAERS Safety Report 16719679 (Version 1)
Quarter: 2019Q3

REPORT INFORMATION
  Report Type: Report from Study
  Country: US (occurrence: US)
  Receive Date: 20190820
  Receipt Date: 20190820
  Transmission Date: 20191005
  Serious: Yes (Other)
  Sender: FDA-Public Use
  Company Number: US-PFIZER INC-2019353768

PATIENT
  Age: 55 Year
  Sex: Female

DRUGS (2)
  1. TOFACITINIB CITRATE [Suspect]
     Active Substance: TOFACITINIB CITRATE
     Indication: ALOPECIA AREATA
     Dosage: 15 MG, DAILY (MAINTENANCE DOSE, SPLIT BID)
     Route: 048
  2. TOFACITINIB CITRATE [Suspect]
     Active Substance: TOFACITINIB CITRATE
     Dosage: 30 MG, UNK
     Route: 048

REACTIONS (3)
  - Blood cholesterol increased [Unknown]
  - Low density lipoprotein increased [Unknown]
  - Acute kidney injury [Unknown]
